FAERS Safety Report 18384556 (Version 1)
Quarter: 2020Q4

REPORT INFORMATION
  Report Type: Spontaneous
  Country: IT (occurrence: IT)
  Receive Date: 20201015
  Receipt Date: 20201015
  Transmission Date: 20210114
  Serious: Yes (Death, Other)
  Sender: FDA-Public Use
  Company Number: IT-AMGEN-ITASP2020166383

PATIENT
  Age: 74 Year
  Sex: Female

DRUGS (2)
  1. PACLITAXEL. [Concomitant]
     Active Substance: PACLITAXEL
     Indication: PAGET^S DISEASE OF THE VULVA
     Dosage: UNK UNK, QWK
  2. TRASTUZUMAB. [Suspect]
     Active Substance: TRASTUZUMAB
     Indication: PAGET^S DISEASE OF THE VULVA
     Dosage: UNK UNK, QWK
     Route: 065
     Dates: start: 201802

REACTIONS (7)
  - Therapy partial responder [Unknown]
  - Nail dystrophy [Unknown]
  - Anaemia [Unknown]
  - Death [Fatal]
  - Extramammary Paget^s disease [Unknown]
  - Off label use [Unknown]
  - Performance status decreased [Unknown]

NARRATIVE: CASE EVENT DATE: 201802
